FAERS Safety Report 4370529-3 (Version None)
Quarter: 2004Q2

REPORT INFORMATION
  Report Type: 
  Country: None (occurrence: None)
  Receive Date: 20040528
  Receipt Date: 20040521
  Transmission Date: 20050107
  Serious: Yes (Death)
  Sender: FDA-Public Use
  Company Number: US-JNJFOC-20030806147

PATIENT
  Age: 81 Year
  Sex: Female

DRUGS (1)
  1. DITROPAN [Suspect]
     Dosage: ORAL
     Route: 048
     Dates: end: 20030101

REACTIONS (1)
  - DEATH [None]
